FAERS Safety Report 4263973-6 (Version None)
Quarter: 2004Q1

REPORT INFORMATION
  Report Type: 
  Country: None (occurrence: None)
  Receive Date: 20040102
  Receipt Date: 20031223
  Transmission Date: 20041129
  Serious: Yes (Disabling)
  Sender: FDA-Public Use
  Company Number: US-JNJFOC-20031205251

PATIENT
  Age: 45 Year
  Sex: Female
  Weight: 43.0917 kg

DRUGS (7)
  1. REMICADE [Suspect]
     Indication: CROHN'S DISEASE
     Dosage: INTRAVENOUS
     Route: 042
     Dates: start: 20031217
  2. ZANTAC [Concomitant]
  3. PREDNISONE [Concomitant]
  4. PEPCID [Concomitant]
  5. ANTACID (ANTACIDS) [Concomitant]
  6. ASACOL [Concomitant]
  7. FLAGYL [Concomitant]

REACTIONS (2)
  - DIPLOPIA [None]
  - FALL [None]
